FAERS Safety Report 20178440 (Version 3)
Quarter: 2022Q1

REPORT INFORMATION
  Report Type: Report from Study
  Country: BR (occurrence: BR)
  Receive Date: 20211213
  Receipt Date: 20220118
  Transmission Date: 20220423
  Serious: Yes (Hospitalization, Disabling, Other)
  Sender: FDA-Public Use
  Company Number: BR-ABBVIE-21K-020-4192253-00

PATIENT
  Sex: Female
  Weight: 83 kg

DRUGS (5)
  1. RINVOQ [Suspect]
     Active Substance: UPADACITINIB
     Indication: Rheumatoid arthritis
     Route: 048
     Dates: start: 20210513, end: 20211124
  2. RINVOQ [Suspect]
     Active Substance: UPADACITINIB
     Route: 048
  3. PREDNISONE [Concomitant]
     Active Substance: PREDNISONE
     Indication: Rheumatoid arthritis
  4. PREDNISONE [Concomitant]
     Active Substance: PREDNISONE
     Dates: start: 2019
  5. PREDNISONE [Concomitant]
     Active Substance: PREDNISONE

REACTIONS (6)
  - Diverticular perforation [Unknown]
  - Colostomy [Recovered/Resolved]
  - Colostomy [Not Recovered/Not Resolved]
  - Suture rupture [Unknown]
  - Obstruction [Unknown]
  - Gait disturbance [Not Recovered/Not Resolved]

NARRATIVE: CASE EVENT DATE: 20210101
